FAERS Safety Report 8246883 (Version 6)
Quarter: 2013Q3

REPORT INFORMATION
  Report Type: Spontaneous
  Country: US (occurrence: US)
  Receive Date: 20111116
  Receipt Date: 20130802
  Transmission Date: 20140515
  Serious: Yes (Hospitalization, Other)
  Sender: FDA-Public Use
  Company Number: US-ROCHE-1012771

PATIENT
  Age: 36 Year
  Sex: Female
  Weight: 45.4 kg

DRUGS (1)
  1. ACCUTANE [Suspect]
     Indication: ACNE
     Route: 065
     Dates: start: 1986, end: 1987

REACTIONS (9)
  - Intestinal obstruction [Unknown]
  - Crohn^s disease [Unknown]
  - Inflammatory bowel disease [Unknown]
  - Depression [Unknown]
  - Stress [Unknown]
  - Injury [Unknown]
  - Rectal abscess [Unknown]
  - Anal fissure [Unknown]
  - Anal fistula [Unknown]
